FAERS Safety Report 6816160-9 (Version None)
Quarter: 2010Q3

REPORT INFORMATION
  Report Type: 
  Country: None (occurrence: None)
  Receive Date: 20100701
  Receipt Date: 20100701
  Transmission Date: 20110219
  Serious: No
  Sender: FDA-Public Use
  Company Number: None

PATIENT

DRUGS (2)
  1. POLY-VITAMIN DROPS W/IRON 10 MG FERROUS SULFATE/ML HI-TECH PHARMACAL C [Suspect]
  2. POLY-VITAMIN DROPS W/IRON + 10 MG FERROUS SULFATE/ML HI-TECH PHARMACAL [Suspect]

REACTIONS (3)
  - MEDICATION ERROR [None]
  - PRODUCT LABEL ISSUE [None]
  - PRODUCT PACKAGING ISSUE [None]
